FAERS Safety Report 10913875 (Version 5)
Quarter: 2015Q2

REPORT INFORMATION
  Report Type: Report from Study
  Country: BR (occurrence: BR)
  Receive Date: 20150313
  Receipt Date: 20150512
  Transmission Date: 20150821
  Serious: Yes (Other)
  Sender: FDA-Public Use
  Company Number: PHHY2015BR024779

PATIENT
  Age: 58 Year
  Sex: Female
  Weight: 60 kg

DRUGS (6)
  1. AFINITOR [Suspect]
     Active Substance: EVEROLIMUS
     Indication: HEPATIC NEOPLASM
     Dosage: 10 MG, QD
     Route: 065
     Dates: start: 201411, end: 201412
  2. AFINITOR [Suspect]
     Active Substance: EVEROLIMUS
     Dosage: 5 MG (1 TABLET), QD
     Route: 065
     Dates: start: 20150115, end: 201504
  3. ANASTROZOL [Concomitant]
     Active Substance: ANASTROZOLE
     Indication: HEPATIC NEOPLASM
     Dosage: 1 DF, QD
     Route: 065
     Dates: start: 201407, end: 201412
  4. TAMOXIFEN [Concomitant]
     Active Substance: TAMOXIFEN
     Indication: BREAST CANCER
     Dosage: UNK
     Route: 065
     Dates: start: 201002, end: 201406
  5. AROMASIN [Concomitant]
     Active Substance: EXEMESTANE
     Indication: HEPATIC NEOPLASM
     Dosage: 1 DF, QD
     Route: 065
     Dates: start: 20150115
  6. AFINITOR [Suspect]
     Active Substance: EVEROLIMUS
     Indication: METASTASES TO LIVER
     Dosage: 5 MG, QD
     Route: 065
     Dates: start: 201411, end: 201411

REACTIONS (29)
  - Speech disorder [Unknown]
  - Wound haemorrhage [Recovered/Resolved]
  - Oedema peripheral [Unknown]
  - Miliaria [Not Recovered/Not Resolved]
  - Malaise [Unknown]
  - Feeding disorder [Unknown]
  - Hepatic pain [Not Recovered/Not Resolved]
  - Neck mass [Not Recovered/Not Resolved]
  - Ligament sprain [Unknown]
  - Aphthous stomatitis [Recovered/Resolved]
  - Aphthous stomatitis [Recovering/Resolving]
  - Wound [Recovered/Resolved]
  - Malignant neoplasm progression [Not Recovered/Not Resolved]
  - Nervousness [Unknown]
  - Wound [Not Recovered/Not Resolved]
  - Off label use [Unknown]
  - Alopecia [Not Recovered/Not Resolved]
  - Dry skin [Not Recovered/Not Resolved]
  - Carbohydrate antigen 15-3 increased [Not Recovered/Not Resolved]
  - Hypersensitivity [Not Recovered/Not Resolved]
  - Oral discomfort [Unknown]
  - Skin burning sensation [Unknown]
  - Drug ineffective [Not Recovered/Not Resolved]
  - Wound complication [Not Recovered/Not Resolved]
  - Condition aggravated [Recovered/Resolved]
  - Oral pain [Unknown]
  - Skin disorder [Recovered/Resolved]
  - Pruritus generalised [Recovering/Resolving]
  - Candida infection [Recovering/Resolving]

NARRATIVE: CASE EVENT DATE: 201411
